FAERS Safety Report 5760683-0 (Version None)
Quarter: 2008Q2

REPORT INFORMATION
  Report Type: 
  Country: None (occurrence: None)
  Receive Date: 20080606
  Receipt Date: 20080603
  Transmission Date: 20081010
  Serious: Yes (Hospitalization)
  Sender: FDA-Public Use
  Company Number: FR-BRISTOL-MYERS SQUIBB COMPANY-14216683

PATIENT
  Age: 52 Year
  Sex: Female

DRUGS (1)
  1. HYDREA [Suspect]
     Indication: ENTEROCOLITIS HAEMORRHAGIC
     Dosage: DOSAGE FORM = 2 TABS PER DAY FROM 23-FEB-2008 TO 28-FEB-2008 THEN 1/D TO 15-MAR-2008.
     Dates: start: 20080223

REACTIONS (6)
  - ARTHRALGIA [None]
  - ERYTHEMA [None]
  - HEADACHE [None]
  - MYALGIA [None]
  - PYREXIA [None]
  - VOMITING [None]
